FAERS Safety Report 5799865-0 (Version None)
Quarter: 2008Q3

REPORT INFORMATION
  Report Type: 
  Country: None (occurrence: None)
  Receive Date: 20080701
  Receipt Date: 20080620
  Transmission Date: 20090109
  Serious: Yes (Hospitalization)
  Sender: FDA-Public Use
  Company Number: 2008BI013283

PATIENT
  Sex: Female

DRUGS (2)
  1. TYSABRI [Suspect]
     Indication: MULTIPLE SCLEROSIS
     Dosage: 300 MG; QM; IV
     Route: 042
     Dates: start: 20080222
  2. PROTONIX [Concomitant]

REACTIONS (8)
  - ASTHENIA [None]
  - BACK DISORDER [None]
  - DECREASED APPETITE [None]
  - DECUBITUS ULCER [None]
  - DEHYDRATION [None]
  - INFECTED SKIN ULCER [None]
  - PYREXIA [None]
  - URINARY TRACT INFECTION [None]
